FAERS Safety Report 19157943 (Version 1)
Quarter: 2021Q2

REPORT INFORMATION
  Report Type: Spontaneous
  Country: CA (occurrence: CA)
  Receive Date: 20210420
  Receipt Date: 20210420
  Transmission Date: 20210717
  Serious: Yes (Death, Hospitalization, Other)
  Sender: FDA-Public Use
  Company Number: CA-009507513-0510CAN00120

PATIENT
  Sex: Male

DRUGS (7)
  1. VALIUM [Concomitant]
     Active Substance: DIAZEPAM
  2. ASCORBIC ACID. [Concomitant]
     Active Substance: ASCORBIC ACID
  3. PERCOCET [Concomitant]
     Active Substance: ACETAMINOPHEN\OXYCODONE HYDROCHLORIDE
  4. VIOXX [Suspect]
     Active Substance: ROFECOXIB
     Indication: PAIN
  5. VIOXX [Suspect]
     Active Substance: ROFECOXIB
     Indication: BACK PAIN
     Dosage: 25 MG, QD
     Route: 048
  6. NONSTEROIDAL ANTI?INFLAMMATORY DRUG (UNSPECIFIED) [Concomitant]
     Active Substance: UNSPECIFIED INGREDIENT
  7. ASPIRIN. [Concomitant]
     Active Substance: ASPIRIN
     Indication: CARDIOVASCULAR EVENT PROPHYLAXIS

REACTIONS (20)
  - Atrial fibrillation [Unknown]
  - Acute kidney injury [Unknown]
  - Myocardial infarction [Unknown]
  - Cholelithiasis [Unknown]
  - Pancreatitis [Unknown]
  - Bronchial secretion retention [Recovered/Resolved]
  - Pneumatosis [Unknown]
  - Haematuria [Unknown]
  - Hyperbilirubinaemia [Unknown]
  - Pulmonary thrombosis [Unknown]
  - Thrombocytopenia [Unknown]
  - Back pain [Unknown]
  - Multiple organ dysfunction syndrome [Fatal]
  - Adjustment disorder [Unknown]
  - Cardiac arrest [Unknown]
  - Endocarditis staphylococcal [Unknown]
  - Septic shock [Unknown]
  - Viral diarrhoea [Unknown]
  - Respiratory failure [Unknown]
  - Arthralgia [Unknown]

NARRATIVE: CASE EVENT DATE: 20021210
